FAERS Safety Report 4496658-1 (Version None)
Quarter: 2004Q4

REPORT INFORMATION
  Report Type: 
  Country: None (occurrence: None)
  Receive Date: 20041108
  Receipt Date: 20041108
  Transmission Date: 20050328
  Serious: Yes (Hospitalization)
  Sender: FDA-Public Use
  Company Number: None

PATIENT
  Age: 52 Year
  Sex: Male
  Weight: 81 kg

DRUGS (2)
  1. GENTAMICIN 40 MG/ML 40 MG/ML [Suspect]
     Indication: ENDOCARDITIS BACTERIAL
     Dosage: 70 MG Q8 HOURS IV
     Route: 042
     Dates: start: 20040308, end: 20040326
  2. AMPICILLIN [Suspect]
     Indication: ENDOCARDITIS BACTERIAL
     Dosage: 8 GM DAILY IV
     Route: 042
     Dates: start: 20040310, end: 20080408

REACTIONS (3)
  - EOSINOPHIL COUNT ABNORMAL [None]
  - NEPHRITIS INTERSTITIAL [None]
  - RENAL FAILURE ACUTE [None]
